FAERS Safety Report 15403885 (Version 1)
Quarter: 2018Q3

REPORT INFORMATION
  Report Type: Spontaneous
  Country: US (occurrence: US)
  Receive Date: 20180919
  Receipt Date: 20180919
  Transmission Date: 20181010
  Serious: No
  Sender: FDA-Public Use
  Company Number: US-SA-2018SA254724

PATIENT
  Sex: Female

DRUGS (3)
  1. PANTOPRAZOLE AMNEAL [Concomitant]
     Indication: INFLAMMATION
     Route: 065
  2. METHOTREXATE. [Concomitant]
     Active Substance: METHOTREXATE
     Route: 065
  3. ARAVA [Suspect]
     Active Substance: LEFLUNOMIDE
     Indication: SCLERODERMA
     Route: 065

REACTIONS (3)
  - Cold sweat [Unknown]
  - Flatulence [Unknown]
  - Abdominal distension [Unknown]
